FAERS Safety Report 10204988 (Version 1)
Quarter: 2014Q2

REPORT INFORMATION
  Report Type: Spontaneous
  Country: US (occurrence: None)
  Receive Date: 20140527
  Receipt Date: 20140527
  Transmission Date: 20141212
  Serious: Yes (Hospitalization)
  Sender: FDA-Public Use
  Company Number: None

PATIENT
  Age: 71 Year
  Sex: Male
  Weight: 109.77 kg

DRUGS (1)
  1. HALDOL [Suspect]
     Indication: VASCULAR GRAFT
     Dates: start: 20140503

REACTIONS (6)
  - Delayed recovery from anaesthesia [None]
  - Confusional state [None]
  - Agitation [None]
  - Feeling abnormal [None]
  - Asthenia [None]
  - Medication error [None]
